FAERS Safety Report 9756063 (Version 1)
Quarter: 2013Q4

REPORT INFORMATION
  Report Type: Spontaneous
  Country: US (occurrence: US)
  Receive Date: 20131213
  Receipt Date: 20131213
  Transmission Date: 20140711
  Serious: No
  Sender: FDA-Public Use
  Company Number: US-GLAXOSMITHKLINE-A1028978A

PATIENT
  Age: 51 Year
  Sex: Female

DRUGS (1)
  1. NICODERM CQ 21MG [Suspect]
     Indication: PRODUCT USED FOR UNKNOWN INDICATION
     Dosage: 21MG UNKNOWN
     Route: 065
     Dates: start: 20130604, end: 20130610

REACTIONS (2)
  - Dizziness [Recovered/Resolved]
  - Feeling abnormal [Recovered/Resolved]
